FAERS Safety Report 11512812 (Version 1)
Quarter: 2015Q3

REPORT INFORMATION
  Report Type: Spontaneous
  Country: US (occurrence: None)
  Receive Date: 20150915
  Receipt Date: 20150915
  Transmission Date: 20151125
  Serious: No
  Sender: FDA-Public Use
  Company Number: None

PATIENT
  Age: 52 Year
  Sex: Male
  Weight: 142.52 kg

DRUGS (1)
  1. ERBITUX [Suspect]
     Active Substance: CETUXIMAB
     Dates: end: 20141029

REACTIONS (7)
  - Mucosal inflammation [None]
  - Fatigue [None]
  - Insomnia [None]
  - Dysphagia [None]
  - Vomiting [None]
  - Toxicity to various agents [None]
  - Productive cough [None]

NARRATIVE: CASE EVENT DATE: 20141105
